FAERS Safety Report 5618697-7 (Version None)
Quarter: 2008Q1

REPORT INFORMATION
  Report Type: 
  Country: None (occurrence: None)
  Receive Date: 20080207
  Receipt Date: 20080130
  Transmission Date: 20080703
  Serious: Yes (Hospitalization, Other)
  Sender: FDA-Public Use
  Company Number: FR-ASTRAZENECA-2008CG00186

PATIENT
  Sex: Female

DRUGS (10)
  1. CRESTOR [Suspect]
     Route: 048
     Dates: start: 20060501, end: 20071201
  2. INSULIN [Concomitant]
     Indication: DIABETES MELLITUS
  3. GLUCOPHAGE [Concomitant]
     Indication: DIABETES MELLITUS
  4. AMLOR [Concomitant]
     Indication: HYPERTENSION
  5. COVERSYL [Concomitant]
     Indication: HYPERTENSION
  6. INIPOMP [Concomitant]
  7. LASILIX [Concomitant]
  8. ALPRESS [Concomitant]
  9. EFFERALGAN [Concomitant]
  10. DI-ANTALVIC [Concomitant]

REACTIONS (3)
  - ATRIAL FIBRILLATION [None]
  - PERICARDIAL EFFUSION [None]
  - PLEURAL EFFUSION [None]
